FAERS Safety Report 6590783-7 (Version None)
Quarter: 2010Q1

REPORT INFORMATION
  Report Type: 
  Country: None (occurrence: None)
  Receive Date: 20100204
  Receipt Date: 20100114
  Transmission Date: 20100710
  Serious: No
  Sender: FDA-Public Use
  Company Number: 2010-00049

PATIENT
  Age: 66 Year
  Sex: Male
  Weight: 80.7403 kg

DRUGS (3)
  1. COLD REMEDY GEL SWABS [Suspect]
     Dosage: 4 DOSES
     Dates: start: 20090301
  2. ALBUTEROL [Concomitant]
  3. MULTI-VITAMIN [Concomitant]

REACTIONS (2)
  - AGEUSIA [None]
  - ANOSMIA [None]
